FAERS Safety Report 13229688 (Version 3)
Quarter: 2017Q4

REPORT INFORMATION
  Report Type: Spontaneous
  Country: US (occurrence: US)
  Receive Date: 20170214
  Receipt Date: 20171106
  Transmission Date: 20180320
  Serious: No
  Sender: FDA-Public Use
  Company Number: US-TEVA-737824ACC

PATIENT
  Age: 51 Year
  Sex: Female

DRUGS (11)
  1. BACLOFEN. [Concomitant]
     Active Substance: BACLOFEN
     Route: 065
  2. COPAXONE [Suspect]
     Active Substance: GLATIRAMER ACETATE
     Indication: MULTIPLE SCLEROSIS
     Dosage: FORMULATION: PFS
     Route: 058
  3. ASPIRIN. [Concomitant]
     Active Substance: ASPIRIN
  4. HYDROCO-APAP [Concomitant]
     Route: 065
  5. JANUVIA [Concomitant]
     Active Substance: SITAGLIPTIN PHOSPHATE
  6. METOPROLOL TARTRATE. [Concomitant]
     Active Substance: METOPROLOL TARTRATE
  7. IBUPROFEN. [Concomitant]
     Active Substance: IBUPROFEN
     Route: 065
  8. LISINOPRIL. [Concomitant]
     Active Substance: LISINOPRIL
  9. GLIPIZIDE. [Concomitant]
     Active Substance: GLIPIZIDE
  10. METFORMIN [Concomitant]
     Active Substance: METFORMIN HYDROCHLORIDE
  11. DOK [Concomitant]
     Active Substance: DOCUSATE SODIUM
     Route: 065

REACTIONS (6)
  - Limb deformity [Unknown]
  - Feeling cold [Unknown]
  - Fall [Unknown]
  - Injury [Unknown]
  - Dizziness [Unknown]
  - Sleep disorder [Unknown]

NARRATIVE: CASE EVENT DATE: 201611
